FAERS Safety Report 17037210 (Version 9)
Quarter: 2020Q4

REPORT INFORMATION
  Report Type: Spontaneous
  Country: JP (occurrence: JP)
  Receive Date: 20191115
  Receipt Date: 20201013
  Transmission Date: 20210113
  Serious: Yes (Death, Hospitalization, Other)
  Sender: FDA-Public Use
  Company Number: JP-UNITED THERAPEUTICS-UNT-2017-017619

PATIENT
  Age: 6 Year
  Sex: Male
  Weight: 17 kg

DRUGS (12)
  1. REMODULIN [Suspect]
     Active Substance: TREPROSTINIL
     Dosage: 0.023 ?G/KG, CONTINUING
     Route: 041
     Dates: start: 201802
  2. REMODULIN [Suspect]
     Active Substance: TREPROSTINIL
     Dosage: 0.063 ?G/KG, CONTINUING
     Route: 041
     Dates: start: 2019
  3. OPSUMIT [Concomitant]
     Active Substance: MACITENTAN
     Indication: PULMONARY ARTERIAL HYPERTENSION
     Dosage: 6 MG/DAY
     Route: 048
     Dates: start: 20170624
  4. FUROSEMIDE. [Concomitant]
     Active Substance: FUROSEMIDE
     Indication: PULMONARY ARTERIAL HYPERTENSION
     Dosage: 18 MG/DAY
     Route: 048
     Dates: start: 20170628
  5. REMODULIN [Suspect]
     Active Substance: TREPROSTINIL
     Dosage: 0.078 ?G/KG, CONTINUING
     Route: 041
  6. ALDACTONE A [Concomitant]
     Active Substance: SPIRONOLACTONE
     Indication: PULMONARY ARTERIAL HYPERTENSION
     Dosage: 18 MG/DAY
     Route: 048
     Dates: start: 20170628
  7. REMODULIN [Suspect]
     Active Substance: TREPROSTINIL
     Dosage: 0.072 ?G/KG, CONTINUING
     Route: 041
     Dates: end: 20200527
  8. REMODULIN [Suspect]
     Active Substance: TREPROSTINIL
     Dosage: 0.041 ?G/KG, CONTINUING
     Route: 041
     Dates: start: 2018
  9. REMODULIN [Suspect]
     Active Substance: TREPROSTINIL
     Dosage: 0.056 ?G/KG, CONTINUING
     Route: 041
  10. ADCIRCA [Concomitant]
     Active Substance: TADALAFIL
     Indication: PULMONARY ARTERIAL HYPERTENSION
     Dosage: 40 MG/DAY
     Route: 048
     Dates: start: 20170626
  11. REMODULIN [Suspect]
     Active Substance: TREPROSTINIL
     Indication: PULMONARY ARTERIAL HYPERTENSION
     Dosage: 0.010 ?G/KG, CONTINUING
     Route: 041
     Dates: start: 20170626
  12. REMODULIN [Suspect]
     Active Substance: TREPROSTINIL
     Dosage: 0.042 ?G/KG, CONTINUING
     Route: 041
     Dates: start: 2018

REACTIONS (10)
  - Injection site erythema [Recovered/Resolved]
  - Decubitus ulcer [Recovering/Resolving]
  - Injection site swelling [Recovered/Resolved]
  - Vascular device infection [Recovered/Resolved]
  - Vascular device infection [Fatal]
  - Injection site pain [Recovered/Resolved]
  - Pulmonary hypertensive crisis [Fatal]
  - Vascular device infection [Recovered/Resolved]
  - Device dislocation [Recovered/Resolved]
  - Skin erosion [Recovering/Resolving]

NARRATIVE: CASE EVENT DATE: 20170710
